FAERS Safety Report 5159063-0 (Version None)
Quarter: 2006Q4

REPORT INFORMATION
  Report Type: 
  Country: None (occurrence: None)
  Receive Date: 20061117
  Receipt Date: 20061104
  Transmission Date: 20070319
  Serious: Yes (Other)
  Sender: FDA-Public Use
  Company Number: 2006136225

PATIENT
  Age: 32 Year
  Sex: Female
  Weight: 49.8957 kg

DRUGS (5)
  1. CHANTIX [Suspect]
     Indication: SMOKING CESSATION THERAPY
     Dosage: 0.5 MG (0.5 MG, 1 IN 1 D), ORAL
     Route: 048
     Dates: start: 20061103
  2. TRAZODONE HCL [Concomitant]
  3. XANAX [Concomitant]
  4. SOMA [Concomitant]
  5. MS CONTIN [Concomitant]

REACTIONS (7)
  - DISORIENTATION [None]
  - DYSGEUSIA [None]
  - GLOSSODYNIA [None]
  - HEART RATE INCREASED [None]
  - HYPERHIDROSIS [None]
  - READING DISORDER [None]
  - RESTLESSNESS [None]
